FAERS Safety Report 24328682 (Version 1)
Quarter: 2024Q3

REPORT INFORMATION
  Report Type: Spontaneous
  Country: BE (occurrence: BE)
  Receive Date: 20240917
  Receipt Date: 20240917
  Transmission Date: 20241016
  Serious: Yes (Hospitalization, Other)
  Sender: BAUSCH AND LOMB
  Company Number: BE-SANDOZ-SDZ2024BE076715

PATIENT
  Sex: Female

DRUGS (2)
  1. ACYCLOVIR [Suspect]
     Active Substance: ACYCLOVIR
     Indication: Haemophagocytic lymphohistiocytosis
     Dosage: 800 MG (1/DAY)
     Route: 065
  2. ACYCLOVIR [Suspect]
     Active Substance: ACYCLOVIR
     Indication: Epstein-Barr virus infection

REACTIONS (8)
  - Hallucination [Unknown]
  - Psychotic symptom [Unknown]
  - Central nervous system lesion [Unknown]
  - Aggression [Unknown]
  - Agitation [Unknown]
  - Abnormal behaviour [Unknown]
  - Tremor [Unknown]
  - Alopecia [Unknown]

NARRATIVE: CASE EVENT DATE: 20240719
